FAERS Safety Report 9881988 (Version 1)
Quarter: 2014Q1

REPORT INFORMATION
  Report Type: Report from Study
  Country: DE (occurrence: DE)
  Receive Date: 20140207
  Receipt Date: 20140207
  Transmission Date: 20141002
  Serious: Yes (Hospitalization)
  Sender: FDA-Public Use
  Company Number: DE-BRISTOL-MYERS SQUIBB COMPANY-20162988

PATIENT
  Age: 56 Year
  Sex: Female

DRUGS (3)
  1. ABATACEPT [Suspect]
     Indication: RHEUMATIC DISORDER
     Dates: start: 200707, end: 200709
  2. TOCILIZUMAB [Suspect]
     Indication: RHEUMATIC DISORDER
     Dosage: 200MG: FEB12
     Dates: start: 200907, end: 200912
  3. CERTOLIZUMAB PEGOL [Suspect]
     Indication: RHEUMATIC DISORDER
     Dosage: NOV04-FEB05
     Dates: start: 201108, end: 201202

REACTIONS (1)
  - Arthropathy [Unknown]
